FAERS Safety Report 13273075 (Version 2)
Quarter: 2017Q1

REPORT INFORMATION
  Report Type: Spontaneous
  Country: JP (occurrence: JP)
  Receive Date: 20170227
  Receipt Date: 20170306
  Transmission Date: 20170428
  Serious: Yes (Death)
  Sender: FDA-Public Use
  Company Number: JP-PFIZER INC-2017081192

PATIENT
  Age: 73 Year
  Sex: Male

DRUGS (8)
  1. TOLVAPTAN [Concomitant]
     Active Substance: TOLVAPTAN
  2. FUROSEMIDE. [Concomitant]
     Active Substance: FUROSEMIDE
  3. METILDIGOXIN [Concomitant]
     Active Substance: METILDIGOXIN
  4. AMIODARONE [Concomitant]
     Active Substance: AMIODARONE
  5. CARVEDILOL. [Concomitant]
     Active Substance: CARVEDILOL
  6. ALDACTONE A [Suspect]
     Active Substance: SPIRONOLACTONE
     Indication: CARDIAC FAILURE
     Route: 048
  7. INDAPAMID [Concomitant]
     Active Substance: INDAPAMIDE
  8. PIMOBENDAN [Concomitant]
     Active Substance: PIMOBENDAN

REACTIONS (2)
  - Cardiac failure [Fatal]
  - Hypothermia [Fatal]
